FAERS Safety Report 5642502-6 (Version None)
Quarter: 2008Q1

REPORT INFORMATION
  Report Type: 
  Country: None (occurrence: None)
  Receive Date: 20080227
  Receipt Date: 20080227
  Transmission Date: 20080703
  Serious: Yes (Other)
  Sender: FDA-Public Use
  Company Number: None

PATIENT
  Age: 59 Year
  Sex: Female

DRUGS (13)
  1. FOSAMAX [Suspect]
     Indication: BREAST CANCER
     Dosage: 10MG QD
     Dates: start: 19950101, end: 19990101
  2. AREDIA [Suspect]
     Indication: OSTEOPOROSIS
     Dosage: 90MG IV MONTHLY
     Route: 042
     Dates: start: 19990101, end: 20030101
  3. LEVOXYL [Concomitant]
  4. CLONAZEPAM [Concomitant]
  5. ZOCOR [Concomitant]
  6. FIORICET [Concomitant]
  7. FLEXERIL [Concomitant]
  8. METHADOSE [Concomitant]
  9. ZANAFLEX [Concomitant]
  10. IRON TABLETS [Concomitant]
  11. CALCIUM [Concomitant]
  12. TYLENOL (CAPLET) [Concomitant]
  13. PROVENTIL [Concomitant]

REACTIONS (1)
  - OSTEONECROSIS [None]
